FAERS Safety Report 11964682 (Version 1)
Quarter: 2016Q1

REPORT INFORMATION
  Report Type: Spontaneous
  Country: US (occurrence: None)
  Receive Date: 20160125
  Receipt Date: 20160125
  Transmission Date: 20160526
  Serious: No
  Sender: FDA-Public Use
  Company Number: None

PATIENT
  Age: 29 Year
  Sex: Female
  Weight: 83.92 kg

DRUGS (2)
  1. MIRENA [Suspect]
     Active Substance: LEVONORGESTREL
  2. PREVIFEM [Concomitant]
     Active Substance: ETHINYL ESTRADIOL\NORGESTIMATE

REACTIONS (11)
  - Alopecia [None]
  - Libido decreased [None]
  - Urticaria [None]
  - Fatigue [None]
  - Feeling abnormal [None]
  - Rash [None]
  - Disturbance in attention [None]
  - Asthenia [None]
  - Quality of life decreased [None]
  - Depression [None]
  - Anxiety [None]
